FAERS Safety Report 4846503-7 (Version None)
Quarter: 2005Q4

REPORT INFORMATION
  Report Type: 
  Country: None (occurrence: None)
  Receive Date: 20051202
  Receipt Date: 20051128
  Transmission Date: 20060501
  Serious: Yes (Death, Hospitalization)
  Sender: FDA-Public Use
  Company Number: 163-20785-04060437

PATIENT
  Age: 63 Year
  Sex: Male

DRUGS (3)
  1. THALOMID [Suspect]
     Indication: MULTIPLE MYELOMA
     Dosage: 250 MG, DAILY, ORAL
     Route: 048
     Dates: start: 20040406
  2. THALOMID [Suspect]
  3. ANTICOAGULANT THERAPY [Concomitant]

REACTIONS (3)
  - CARDIAC ARREST [None]
  - CONVULSION [None]
  - RESPIRATORY FAILURE [None]
